FAERS Safety Report 7268033-8 (Version None)
Quarter: 2010Q4

REPORT INFORMATION
  Report Type: 
  Country: None (occurrence: None)
  Receive Date: 20101206
  Receipt Date: 20101112
  Transmission Date: 20110411
  Serious: No
  Sender: FDA-Public Use
  Company Number: 2010SP059916

PATIENT
  Age: 62 Year
  Sex: Male

DRUGS (2)
  1. SAPHRIS [Suspect]
     Indication: BIPOLAR DISORDER
     Dosage: 5 MG; SL
     Route: 060
     Dates: start: 20101111
  2. KLONOPIN [Concomitant]

REACTIONS (1)
  - INSOMNIA [None]
